FAERS Safety Report 12933330 (Version 1)
Quarter: 2016Q4

REPORT INFORMATION
  Report Type: Other
  Country: CN (occurrence: CN)
  Receive Date: 20161111
  Receipt Date: 20161111
  Transmission Date: 20170207
  Serious: Yes (Other)
  Sender: FDA-Public Use
  Company Number: CN-TAKEDA-2016MPI009698

PATIENT
  Age: 68 Year
  Sex: Male
  Weight: 51.6 kg

DRUGS (3)
  1. FLUDARABINE PHOSPHATE. [Suspect]
     Active Substance: FLUDARABINE PHOSPHATE
     Indication: NON-HODGKIN^S LYMPHOMA
     Route: 041
     Dates: start: 20151001, end: 20151003
  2. CYCLOPHOSPHAMIDE. [Suspect]
     Active Substance: CYCLOPHOSPHAMIDE
     Indication: NON-HODGKIN^S LYMPHOMA
     Route: 041
     Dates: start: 20151001, end: 20151002
  3. VELCADE [Suspect]
     Active Substance: BORTEZOMIB
     Indication: NON-HODGKIN^S LYMPHOMA
     Dosage: 1.99 MG, UNK
     Route: 040
     Dates: start: 20151001, end: 20151001

REACTIONS (5)
  - Gastrointestinal obstruction [Recovering/Resolving]
  - Off label use [Unknown]
  - Bone marrow failure [Recovering/Resolving]
  - Haematochezia [Recovering/Resolving]
  - Product use issue [Unknown]

NARRATIVE: CASE EVENT DATE: 20151001
